FAERS Safety Report 10068850 (Version 2)
Quarter: 2014Q2

REPORT INFORMATION
  Report Type: Spontaneous
  Country: US (occurrence: US)
  Receive Date: 20140409
  Receipt Date: 20140410
  Transmission Date: 20141212
  Serious: No
  Sender: FDA-Public Use
  Company Number: US-BAYER-2014-047836

PATIENT
  Sex: Female

DRUGS (1)
  1. CIPROFLOXACIN BETAIN [Suspect]
     Dosage: UNK

REACTIONS (2)
  - Restlessness [None]
  - Paraesthesia [None]
